FAERS Safety Report 12602074 (Version 1)
Quarter: 2016Q3

REPORT INFORMATION
  Report Type: Spontaneous
  Country: US (occurrence: US)
  Receive Date: 20160728
  Receipt Date: 20160728
  Transmission Date: 20161109
  Serious: No
  Sender: FDA-Public Use
  Company Number: US-PFIZER INC-2016321215

PATIENT
  Age: 45 Year
  Sex: Male

DRUGS (2)
  1. SUTENT [Suspect]
     Active Substance: SUNITINIB MALATE
     Indication: RENAL CANCER
     Dosage: UNK UNK, CYCLIC (1 PO DAILY FOR 14 DAYS ON AND 7 DAYS OFF)
     Route: 048
  2. SUTENT [Suspect]
     Active Substance: SUNITINIB MALATE
     Dosage: UNK, CYCLIC (37.5, TAKE 1 CAPSULE BY MOUTH ONCE DAILY FOR 2 WEEKS ON AND 1 WEEK OFF)
     Route: 048

REACTIONS (2)
  - Sunburn [Unknown]
  - Skin discolouration [Unknown]

NARRATIVE: CASE EVENT DATE: 20160630
